FAERS Safety Report 14092247 (Version 1)
Quarter: 2017Q4

REPORT INFORMATION
  Report Type: Spontaneous
  Country: FR (occurrence: FR)
  Receive Date: 20171016
  Receipt Date: 20171016
  Transmission Date: 20180321
  Serious: Yes (Other)
  Sender: FDA-Public Use
  Company Number: FR-009507513-1710FRA001972

PATIENT
  Sex: Female

DRUGS (3)
  1. XENETIX [Concomitant]
     Active Substance: IOBITRIDOL
     Dosage: 10 ML, ONCE (STRENGTH: 300 MG IODE/ML)
     Route: 042
     Dates: start: 20170908
  2. DIPROSTENE [Suspect]
     Active Substance: BETAMETHASONE DIPROPIONATE\BETAMETHASONE SODIUM PHOSPHATE
     Indication: ARTHROPATHY
     Dosage: 1 ML, ONCE
     Route: 014
     Dates: start: 20170908
  3. DIPROSTENE [Suspect]
     Active Substance: BETAMETHASONE DIPROPIONATE\BETAMETHASONE SODIUM PHOSPHATE
     Indication: EXTRAVASATION

REACTIONS (3)
  - Headache [Not Recovered/Not Resolved]
  - Malaise [Not Recovered/Not Resolved]
  - Blood glucose increased [Not Recovered/Not Resolved]
